FAERS Safety Report 4354526-X (Version None)
Quarter: 2004Q2

REPORT INFORMATION
  Report Type: 
  Country: None (occurrence: None)
  Receive Date: 20040503
  Receipt Date: 20040427
  Transmission Date: 20050107
  Serious: Yes (Hospitalization)
  Sender: FDA-Public Use
  Company Number: 2004-04-1571

PATIENT
  Age: 49 Year
  Sex: Female

DRUGS (6)
  1. INTRON A [Suspect]
     Indication: HEPATITIS C
     Dosage: 120 MCG QWK SUBCUTANEOUS
     Route: 058
  2. REBETOL [Suspect]
     Indication: HEPATITIS C
     Dosage: SEE IMAGE
     Route: 048
  3. ZIDOVUDINE [Concomitant]
  4. TENOFOVIR (PMPA) [Concomitant]
  5. ABACAVIR [Concomitant]
  6. EFAVIRENZ [Concomitant]

REACTIONS (6)
  - BLOOD LACTATE DEHYDROGENASE INCREASED [None]
  - CHROMATURIA [None]
  - HAEMOGLOBIN DECREASED [None]
  - HAEMOGLOBINURIA [None]
  - HAPTOGLOBIN DECREASED [None]
  - RETICULOCYTE PERCENTAGE INCREASED [None]
